FAERS Safety Report 6375658-0 (Version None)
Quarter: 2009Q3

REPORT INFORMATION
  Report Type: 
  Country: None (occurrence: None)
  Receive Date: 20090918
  Receipt Date: 20090918
  Transmission Date: 20100115
  Serious: Yes (Disabling)
  Sender: FDA-Public Use
  Company Number: None

PATIENT
  Age: 55 Year
  Sex: Male
  Weight: 120 kg

DRUGS (2)
  1. BENZTROPINE MESYLATE [Suspect]
     Indication: AGITATION
     Dosage: 0.5 MG TWICE A DAY PO AT LEAST 1 MONTHS
     Route: 048
  2. HALOPERIDOL [Suspect]
     Indication: BIPOLAR DISORDER
     Dosage: 5 MG EVERY 4 HOUR PRN PO UNKNOWN
     Route: 048

REACTIONS (1)
  - ILEUS [None]
